FAERS Safety Report 23146694 (Version 1)
Quarter: 2023Q4

REPORT INFORMATION
  Report Type: Spontaneous
  Country: DE (occurrence: DE)
  Receive Date: 20231105
  Receipt Date: 20231105
  Transmission Date: 20240109
  Serious: Yes (Death)
  Sender: FDA-Public Use
  Company Number: DE-002147023-NVSC2023DE235973

PATIENT
  Sex: Female
  Weight: 73 kg

DRUGS (2)
  1. DABRAFENIB [Suspect]
     Active Substance: DABRAFENIB
     Indication: Non-small cell lung cancer
     Dosage: 150 MG, QD
     Route: 065
     Dates: start: 20230530, end: 20230831
  2. TRAMETINIB [Suspect]
     Active Substance: TRAMETINIB
     Indication: Non-small cell lung cancer
     Dosage: 2 MG, QD
     Route: 065
     Dates: start: 20230530, end: 20230831

REACTIONS (3)
  - Neoplasm [Fatal]
  - Non-small cell lung cancer [Fatal]
  - Malignant neoplasm progression [Fatal]
